FAERS Safety Report 4264495-9 (Version None)
Quarter: 2004Q1

REPORT INFORMATION
  Report Type: 
  Country: None (occurrence: None)
  Receive Date: 20040106
  Receipt Date: 20040106
  Transmission Date: 20041129
  Serious: Yes (Hospitalization)
  Sender: FDA-Public Use
  Company Number: None

PATIENT
  Age: 23 Year
  Sex: Female
  Weight: 118 kg

DRUGS (2)
  1. IFOSFAMIDE [Suspect]
     Dosage: 2 GM/M2 3.3 GM
     Dates: start: 20031231, end: 20040101
  2. MESNA [Suspect]

REACTIONS (2)
  - CONFUSIONAL STATE [None]
  - TREMOR [None]
